FAERS Safety Report 4966096-3 (Version None)
Quarter: 2006Q2

REPORT INFORMATION
  Report Type: 
  Country: None (occurrence: None)
  Receive Date: 20060403
  Receipt Date: 20060322
  Transmission Date: 20061013
  Serious: Yes (Death, Hospitalization, Other)
  Sender: FDA-Public Use
  Company Number: 2005076541

PATIENT
  Age: 86 Year
  Sex: Male
  Weight: 67.2684 kg

DRUGS (5)
  1. BENADRYL ALLERGY/SINUS [Suspect]
     Indication: RHINORRHOEA
     Dosage: 2 TABLETS A DAY, ORAL
     Route: 048
     Dates: start: 20050504, end: 20050511
  2. DOCUSATE SODIUM [Concomitant]
  3. SENNA FRUIT [Concomitant]
  4. ALLERGY MEDICATION [Concomitant]
  5. CALCIUM CARBONATE [Concomitant]

REACTIONS (20)
  - ABDOMINAL DISTENSION [None]
  - ABDOMINAL TENDERNESS [None]
  - ANOREXIA [None]
  - BACTERIA URINE [None]
  - BENIGN PROSTATIC HYPERPLASIA [None]
  - BLADDER TRABECULATION [None]
  - CHROMATURIA [None]
  - CONSTIPATION [None]
  - CYSTITIS [None]
  - DEPENDENCE ON ENABLING MACHINE OR DEVICE [None]
  - DEPRESSION [None]
  - GASTROINTESTINAL DISORDER [None]
  - MUSCLE SPASMS [None]
  - PAIN [None]
  - PROSTATIC OBSTRUCTION [None]
  - PROSTATIC SPECIFIC ANTIGEN INCREASED [None]
  - RED BLOOD CELLS URINE POSITIVE [None]
  - SOCIAL AVOIDANT BEHAVIOUR [None]
  - URETHRAL STENOSIS [None]
  - URINARY RETENTION [None]
